FAERS Safety Report 6014467-9 (Version None)
Quarter: 2008Q4

REPORT INFORMATION
  Report Type: 
  Country: None (occurrence: None)
  Receive Date: 20081219
  Receipt Date: 20080715
  Transmission Date: 20090506
  Serious: No
  Sender: FDA-Public Use
  Company Number: A0736045A

PATIENT
  Age: 51 Year
  Sex: Male
  Weight: 90.9 kg

DRUGS (2)
  1. AVODART [Suspect]
     Indication: BENIGN PROSTATIC HYPERPLASIA
     Dosage: 1CAP PER DAY
     Route: 048
     Dates: start: 20080122, end: 20080523
  2. UROXATRAL [Concomitant]

REACTIONS (2)
  - ASTHENIA [None]
  - MYALGIA [None]
